FAERS Safety Report 4667884-3 (Version None)
Quarter: 2005Q2

REPORT INFORMATION
  Report Type: 
  Country: None (occurrence: None)
  Receive Date: 20050520
  Receipt Date: 20050504
  Transmission Date: 20051028
  Serious: Yes (Hospitalization)
  Sender: FDA-Public Use
  Company Number: US-ROCHE-403984

PATIENT
  Age: 64 Year
  Sex: Male
  Weight: 77.6 kg

DRUGS (2)
  1. PEGASYS [Suspect]
     Route: 058
     Dates: start: 20041008
  2. COPEGUS [Suspect]
     Dosage: 400MG IN THE MORNING, AND 400MG IN THE EVENING
     Route: 048
     Dates: start: 20041008

REACTIONS (5)
  - ANAEMIA [None]
  - CONDITION AGGRAVATED [None]
  - CROHN'S DISEASE [None]
  - DUODENAL ULCER [None]
  - GASTROINTESTINAL HAEMORRHAGE [None]
